FAERS Safety Report 10071190 (Version 1)
Quarter: 2014Q2

REPORT INFORMATION
  Report Type: Spontaneous
  Country: HR (occurrence: HR)
  Receive Date: 20140410
  Receipt Date: 20140410
  Transmission Date: 20141212
  Serious: Yes (Hospitalization)
  Sender: FDA-Public Use
  Company Number: PHHY2014HR039941

PATIENT
  Age: 78 Year
  Sex: Female

DRUGS (5)
  1. EDEMID FORTE [Suspect]
     Indication: CARDIAC FAILURE
     Dosage: 125 MG, BID
     Route: 048
     Dates: start: 20140107, end: 201401
  2. LOTAR [Suspect]
     Indication: ESSENTIAL HYPERTENSION
     Dosage: 25 MG, QD
     Route: 048
     Dates: start: 20140107, end: 201401
  3. CONCOR COR [Concomitant]
     Indication: CARDIAC FAILURE
     Dosage: 1.25 MG, QD
     Route: 048
     Dates: start: 20140107
  4. FOLACIN [Concomitant]
     Indication: ANAEMIA
     Dosage: 5 MG, QD
     Route: 048
     Dates: start: 20140107, end: 201401
  5. CONTROLOC [Concomitant]
     Indication: GASTROOESOPHAGEAL REFLUX DISEASE
     Dosage: 20 MG, QD
     Dates: start: 20140107

REACTIONS (3)
  - Renal failure chronic [Recovered/Resolved with Sequelae]
  - Blood creatinine increased [Recovered/Resolved with Sequelae]
  - Blood urea increased [Recovered/Resolved with Sequelae]
